FAERS Safety Report 6636387-9 (Version None)
Quarter: 2010Q1

REPORT INFORMATION
  Report Type: 
  Country: None (occurrence: None)
  Receive Date: 20100226
  Receipt Date: 20090324
  Transmission Date: 20100710
  Serious: Yes (Hospitalization, Other)
  Sender: FDA-Public Use
  Company Number: WAES 0709USA04663

PATIENT
  Age: 42 Year
  Sex: Female

DRUGS (21)
  1. PRINIVIL [Suspect]
     Dosage: 20 MG/DAILY/PO; SEE IMAGE
     Route: 048
     Dates: end: 20030212
  2. DYAZIDE [Suspect]
     Dosage: 1 TAB/DAILY/PO
     Route: 048
     Dates: end: 20030212
  3. VIOXX [Suspect]
     Dosage: 25 MG/DAILY/PO
     Route: 048
     Dates: end: 20030212
  4. CARDIZEM CD [Concomitant]
  5. COZAAR [Concomitant]
  6. LASIX [Concomitant]
  7. MYLANTA [Concomitant]
  8. NITRO-DUR [Concomitant]
  9. PAXIL [Concomitant]
  10. PLAVIX [Concomitant]
  11. PROTONIX [Concomitant]
  12. WELLBUTRIN SR [Concomitant]
  13. ZOCOR [Concomitant]
  14. ZOFRAN [Concomitant]
  15. ASPIRIN [Concomitant]
  16. CLONIDINE [Concomitant]
  17. FOLIC ACID [Concomitant]
  18. LABETALOL HYDROCHLORIDE [Concomitant]
  19. NITROGLYCERIN [Concomitant]
  20. POTASSIUM CHLORIDE [Concomitant]
  21. RANITIDINE [Concomitant]

REACTIONS (3)
  - CHEST PAIN [None]
  - RENAL FAILURE ACUTE [None]
  - URTICARIA [None]
